FAERS Safety Report 10578041 (Version 2)
Quarter: 2014Q4

REPORT INFORMATION
  Report Type: Spontaneous
  Country: CZ (occurrence: CZ)
  Receive Date: 20141112
  Receipt Date: 20141125
  Transmission Date: 20150529
  Serious: Yes (Hospitalization, Other)
  Sender: FDA-Public Use
  Company Number: CZ-BRISTOL-MYERS SQUIBB COMPANY-21583968

PATIENT
  Age: 74 Year
  Sex: Male
  Weight: 73 kg

DRUGS (13)
  1. OMNIC [Concomitant]
     Active Substance: TAMSULOSIN HYDROCHLORIDE
  2. STILNOX [Concomitant]
     Active Substance: ZOLPIDEM TARTRATE
  3. ANOPYRIN [Concomitant]
     Active Substance: ASPIRIN
  4. JANUVIA [Concomitant]
     Active Substance: SITAGLIPTIN PHOSPHATE
  5. OMNIC TOCAS [Concomitant]
  6. LITALIR [Suspect]
     Active Substance: HYDROXYUREA
  7. VESICARE [Concomitant]
     Active Substance: SOLIFENACIN SUCCINATE
  8. PLAVIX [Concomitant]
     Active Substance: CLOPIDOGREL BISULFATE
  9. ISOKET [Concomitant]
     Active Substance: ISOSORBIDE DINITRATE
  10. PROCORALAN [Concomitant]
     Active Substance: IVABRADINE
  11. PREDUCTAL [Concomitant]
     Active Substance: TRIMETAZIDINE DIHYDROCHLORIDE
  12. GLUCOPHAGE [Concomitant]
     Active Substance: METFORMIN HYDROCHLORIDE
  13. AMARYL [Concomitant]
     Active Substance: GLIMEPIRIDE

REACTIONS (1)
  - Coronary artery disease [Unknown]
